FAERS Safety Report 4885805-5 (Version None)
Quarter: 2006Q1

REPORT INFORMATION
  Report Type: 
  Country: None (occurrence: None)
  Receive Date: 20060117
  Receipt Date: 20060102
  Transmission Date: 20060701
  Serious: Yes (Hospitalization)
  Sender: FDA-Public Use
  Company Number: S06-FRA-00041-01

PATIENT
  Age: 40 Year
  Sex: Female

DRUGS (3)
  1. CITALOPRAM HYDROBROMIDE [Suspect]
     Dosage: 1 QD PO
     Route: 048
     Dates: start: 20040401, end: 20040701
  2. CITALOPRAM HYDROBROMIDE [Suspect]
     Dosage: 1 QD PO
     Route: 048
     Dates: start: 20050915
  3. PLAQUENIL [Concomitant]

REACTIONS (4)
  - CONDITION AGGRAVATED [None]
  - LYMPHOCYTOSIS [None]
  - NEUTROPENIA [None]
  - PLASMACYTOSIS [None]
